FAERS Safety Report 5709631-X (Version None)
Quarter: 2008Q2

REPORT INFORMATION
  Report Type: 
  Country: None (occurrence: None)
  Receive Date: 20080418
  Receipt Date: 20080409
  Transmission Date: 20081010
  Serious: Yes (Life-Threatening, Hospitalization)
  Sender: FDA-Public Use
  Company Number: B0516052A

PATIENT
  Age: 41 Year
  Sex: Female

DRUGS (6)
  1. AUGMENTIN '125' [Suspect]
     Indication: DRUG USE FOR UNKNOWN INDICATION
     Route: 042
     Dates: start: 20071120
  2. TRACRIUM [Concomitant]
     Route: 042
     Dates: start: 20071120
  3. DIPRIVAN [Concomitant]
     Route: 042
     Dates: start: 20071120
  4. SUFENTA [Concomitant]
     Route: 042
     Dates: start: 20071120
  5. ATARAX [Concomitant]
     Indication: PREMEDICATION
     Route: 065
     Dates: start: 20071120
  6. XANAX [Concomitant]
     Indication: PREMEDICATION
     Route: 065
     Dates: start: 20071120

REACTIONS (3)
  - ANAPHYLACTIC SHOCK [None]
  - CARDIAC ARREST [None]
  - CIRCULATORY COLLAPSE [None]
